FAERS Safety Report 5706265-8 (Version None)
Quarter: 2008Q2

REPORT INFORMATION
  Report Type: 
  Country: None (occurrence: None)
  Receive Date: 20080415
  Receipt Date: 20080402
  Transmission Date: 20081010
  Serious: Yes (Hospitalization)
  Sender: FDA-Public Use
  Company Number: JP-SANOFI-SYNTHELABO-A01200803783

PATIENT
  Sex: Male

DRUGS (9)
  1. BLOPRESS [Suspect]
     Indication: HYPERTENSION
     Route: 048
     Dates: start: 20061101
  2. PARIET [Suspect]
     Indication: GASTRIC ULCER
     Route: 048
     Dates: start: 20061101
  3. PREDONINE [Suspect]
     Indication: RENAL TRANSPLANT
     Route: 048
     Dates: start: 20061101
  4. BIO-THREE [Suspect]
     Indication: RENAL TRANSPLANT
     Route: 048
     Dates: start: 20061101
  5. PROGRAF [Suspect]
     Indication: RENAL TRANSPLANT
     Route: 048
     Dates: start: 20061101
  6. CELLCEPT [Suspect]
     Indication: RENAL TRANSPLANT
     Route: 048
     Dates: start: 20061101
  7. VALGANCICLOVIR HCL [Suspect]
     Indication: CYTOMEGALOVIRUS INFECTION
     Route: 048
     Dates: start: 20070710, end: 20070823
  8. DIAZEPAM [Suspect]
     Indication: INSOMNIA
     Route: 048
     Dates: start: 20061101
  9. MYSLEE [Suspect]
     Indication: INSOMNIA
     Route: 048
     Dates: start: 20061101

REACTIONS (5)
  - ACUTE PSYCHOSIS [None]
  - ANXIETY [None]
  - DECREASED ACTIVITY [None]
  - PERSECUTORY DELUSION [None]
  - RESTLESSNESS [None]
